FAERS Safety Report 9153937 (Version 4)
Quarter: 2013Q3

REPORT INFORMATION
  Report Type: Report from Study
  Country: US (occurrence: US)
  Receive Date: 20130311
  Receipt Date: 20130918
  Transmission Date: 20140515
  Serious: Yes (Hospitalization, Other)
  Sender: FDA-Public Use
  Company Number: US-JNJFOC-20130301748

PATIENT
  Age: 72 Year
  Sex: Male
  Weight: 54 kg

DRUGS (10)
  1. STELARA [Suspect]
     Indication: PSORIASIS
     Route: 058
     Dates: start: 20120618
  2. STELARA [Suspect]
     Indication: PSORIASIS
     Route: 058
     Dates: start: 20120709
  3. STELARA [Suspect]
     Indication: PSORIASIS
     Route: 058
     Dates: start: 20121001
  4. STELARA [Suspect]
     Indication: PSORIASIS
     Route: 058
     Dates: start: 20121217
  5. DOVONEX [Suspect]
     Indication: PSORIASIS
     Route: 061
  6. ANTEBATE [Suspect]
     Indication: PSORIASIS
     Route: 061
  7. OXAROL [Concomitant]
     Indication: PSORIASIS
     Route: 061
  8. YODEL [Concomitant]
     Indication: CONSTIPATION
     Route: 048
  9. NEORAL [Concomitant]
     Indication: PSORIASIS
     Route: 048
     Dates: start: 20130617
  10. MAGNESIUM OXIDE [Concomitant]
     Indication: CONSTIPATION
     Route: 048
     Dates: start: 20130404

REACTIONS (1)
  - Rectal cancer [Recovering/Resolving]
